FAERS Safety Report 23977114 (Version 2)
Quarter: 2024Q3

REPORT INFORMATION
  Report Type: Spontaneous
  Country: DK (occurrence: DK)
  Receive Date: 20240614
  Receipt Date: 20240710
  Transmission Date: 20241016
  Serious: Yes (Other)
  Sender: MYLAN
  Company Number: DK-SANDOZ-SDZ2024DK052670

PATIENT
  Sex: Male

DRUGS (1)
  1. FLUOXETINE [Suspect]
     Active Substance: FLUOXETINE HYDROCHLORIDE
     Indication: Product used for unknown indication
     Dosage: 6.5 MILLIGRAM
     Route: 065

REACTIONS (22)
  - Drug dependence [Unknown]
  - Drug abuse [Unknown]
  - Depression [Unknown]
  - Swelling [Recovered/Resolved]
  - Influenza like illness [Recovered/Resolved]
  - Photopsia [Unknown]
  - Discomfort [Unknown]
  - Cold sweat [Not Recovered/Not Resolved]
  - Myalgia [Unknown]
  - Restlessness [Unknown]
  - Nausea [Not Recovered/Not Resolved]
  - Balance disorder [Not Recovered/Not Resolved]
  - Dizziness [Recovered/Resolved]
  - Paraesthesia [Unknown]
  - Headache [Recovered/Resolved]
  - Withdrawal syndrome [Unknown]
  - Asthenia [Unknown]
  - Arthralgia [Unknown]
  - Product packaging quantity issue [Unknown]
  - Wrong technique in product usage process [Unknown]
  - Incorrect dose administered [Unknown]
  - Overdose [Unknown]
